FAERS Safety Report 7462259-6 (Version None)
Quarter: 2011Q2

REPORT INFORMATION
  Report Type: 
  Country: None (occurrence: None)
  Receive Date: 20110506
  Receipt Date: 20110322
  Transmission Date: 20111010
  Serious: Yes (Other)
  Sender: FDA-Public Use
  Company Number: US-BAYER-201012551NA

PATIENT
  Age: 26 Year
  Sex: Female
  Weight: 77.551 kg

DRUGS (15)
  1. MAXZIDE [Concomitant]
     Route: 048
  2. PROMETHAZINE [Concomitant]
     Route: 048
  3. ORTHO-CEPT [Concomitant]
     Dosage: UNK
     Dates: start: 20061001, end: 20070101
  4. YASMIN [Suspect]
     Indication: PRODUCT USED FOR UNKNOWN INDICATION
     Dosage: 1 DF (DAILY DOSE), , ORAL
     Route: 048
  5. HYDROCHLOROTHIAZIDE [Concomitant]
     Indication: HYPERTENSION
     Dosage: UNK
     Route: 048
     Dates: start: 20050505
  6. LEXAPRO [Concomitant]
     Route: 048
  7. MEDROXYPROGESTERONE [Concomitant]
     Dosage: UNK
     Dates: start: 20060829
  8. YAZ [Suspect]
     Indication: PRODUCT USED FOR UNKNOWN INDICATION
     Dosage: 1 DF (DAILY DOSE), , ORAL
     Route: 048
  9. DROSPIRENONE AND ETHINYL ESTRADIOL [Suspect]
     Indication: PRODUCT USED FOR UNKNOWN INDICATION
     Dosage: 1 PILL/DAY
     Route: 048
  10. EXCEDRIN (MIGRAINE) [Concomitant]
     Route: 048
  11. AZITHROMYCIN [Concomitant]
     Dosage: 250 MG, UNK
     Dates: start: 20061017
  12. IBUPROFEN [Concomitant]
     Dosage: 800 MG, UNK
     Route: 048
     Dates: start: 20061213
  13. CIPROFLOXACIN [Concomitant]
     Dosage: 250 MG, UNK
     Dates: start: 20061228
  14. BACTRIM [Concomitant]
     Route: 048
  15. PRILOSEC [Concomitant]
     Route: 048

REACTIONS (3)
  - BILIARY COLIC [None]
  - GALLBLADDER INJURY [None]
  - CHOLECYSTITIS [None]
